FAERS Safety Report 21212975 (Version 2)
Quarter: 2022Q4

REPORT INFORMATION
  Report Type: Spontaneous
  Country: JP (occurrence: JP)
  Receive Date: 20220815
  Receipt Date: 20221114
  Transmission Date: 20230113
  Serious: Yes (Other)
  Sender: FDA-Public Use
  Company Number: JP-BAYER-2022A113382

PATIENT
  Age: 72 Year
  Sex: Male
  Weight: 47 kg

DRUGS (3)
  1. XOFIGO [Suspect]
     Active Substance: RADIUM RA-223 DICHLORIDE
     Indication: Metastases to bone
     Dosage: 55KBQ/KG, ONCE
     Dates: start: 20220609, end: 20220609
  2. XOFIGO [Suspect]
     Active Substance: RADIUM RA-223 DICHLORIDE
     Indication: Hormone-refractory prostate cancer
     Dosage: 55KBQ/KG, ONCE
     Dates: start: 20220707, end: 20220707
  3. LEUPLIN [Concomitant]
     Active Substance: LEUPROLIDE ACETATE
     Dosage: DAILY DOSE 22.5 MG

REACTIONS (1)
  - Malignant neoplasm progression [None]

NARRATIVE: CASE EVENT DATE: 20220727
